FAERS Safety Report 10241298 (Version 1)
Quarter: 2014Q2

REPORT INFORMATION
  Report Type: Spontaneous
  Country: GB (occurrence: GB)
  Receive Date: 20140617
  Receipt Date: 20140617
  Transmission Date: 20141212
  Serious: Yes (Other)
  Sender: FDA-Public Use
  Company Number: PHHY2014GB071941

PATIENT
  Sex: 0

DRUGS (4)
  1. ACETYLSALICYLIC ACID [Suspect]
  2. NITROFURANTOIN [Suspect]
     Indication: PROPHYLAXIS
  3. MEROPENEM [Suspect]
     Route: 042
  4. DEXAMETHASONE [Suspect]

REACTIONS (4)
  - Pseudomonas infection [Unknown]
  - Pathogen resistance [Unknown]
  - Normal newborn [Unknown]
  - Maternal exposure during pregnancy [Unknown]
